FAERS Safety Report 4321868-3 (Version None)
Quarter: 2004Q1

REPORT INFORMATION
  Report Type: 
  Country: None (occurrence: None)
  Receive Date: 20040322
  Receipt Date: 20031224
  Transmission Date: 20041129
  Serious: No
  Sender: FDA-Public Use
  Company Number: A-US2002-00550

PATIENT
  Age: 55 Year
  Sex: Female
  Weight: 54.4 kg

DRUGS (11)
  1. TRACLEER [Suspect]
     Indication: PULMONARY HYPERTENSION
     Dosage: 31.25 MG, BID, ORAL
     Route: 048
     Dates: start: 20030723, end: 20031009
  2. LASIX [Concomitant]
  3. FLOLAN [Concomitant]
  4. PREMARIN [Concomitant]
  5. ALDACTONE [Concomitant]
  6. OXYCONTIN [Concomitant]
  7. SOTALOL HCL [Concomitant]
  8. MS CONTIN [Concomitant]
  9. XANAX [Concomitant]
  10. SLOW-MAG (MAGNESIUM CHLORIDE ANHYDROUS) [Concomitant]
  11. NEXIUM [Concomitant]

REACTIONS (3)
  - MALAISE [None]
  - OEDEMA [None]
  - WEIGHT INCREASED [None]
